FAERS Safety Report 14671515 (Version 1)
Quarter: 2018Q1

REPORT INFORMATION
  Report Type: Spontaneous
  Country: JP (occurrence: JP)
  Receive Date: 20180323
  Receipt Date: 20180323
  Transmission Date: 20180509
  Serious: Yes (Other)
  Sender: FDA-Public Use
  Company Number: JP-XIROMED, LLC-XIRO20180147

PATIENT
  Age: 80 Year
  Sex: Female

DRUGS (1)
  1. LANSOPRAZOLE. [Suspect]
     Active Substance: LANSOPRAZOLE
     Indication: GASTROOESOPHAGEAL REFLUX DISEASE
     Dosage: UNKNOWN
     Route: 065

REACTIONS (4)
  - Colitis microscopic [Recovering/Resolving]
  - Large intestine perforation [Recovered/Resolved]
  - Diarrhoea [Recovering/Resolving]
  - Procedural complication [Recovered/Resolved]
